FAERS Safety Report 4313767-8 (Version None)
Quarter: 2004Q1

REPORT INFORMATION
  Report Type: 
  Country: None (occurrence: None)
  Receive Date: 20040305
  Receipt Date: 20040225
  Transmission Date: 20041129
  Serious: Yes (Other)
  Sender: FDA-Public Use
  Company Number: HQWYE348725FEB04

PATIENT
  Age: 11 Year
  Sex: Male

DRUGS (2)
  1. INDERAL [Suspect]
     Dosage: ^SMALL DOSE^
  2. CARBAMAZEPINE [Concomitant]

REACTIONS (3)
  - BRADYCARDIA [None]
  - VENTRICULAR EXTRASYSTOLES [None]
  - VENTRICULAR TACHYCARDIA [None]
